FAERS Safety Report 23625261 (Version 1)
Quarter: 2024Q1

REPORT INFORMATION
  Report Type: Report from Study
  Country: TW (occurrence: TW)
  Receive Date: 20240313
  Receipt Date: 20240313
  Transmission Date: 20240410
  Serious: Yes (Hospitalization, Other)
  Sender: FDA-Public Use
  Company Number: TW-ABBVIE-5672286

PATIENT
  Age: 49 Year
  Sex: Male
  Weight: 75 kg

DRUGS (1)
  1. RINVOQ [Suspect]
     Active Substance: UPADACITINIB
     Indication: Rheumatoid arthritis
     Route: 048
     Dates: start: 20230918, end: 20240226

REACTIONS (11)
  - Septic shock [Unknown]
  - Cellulitis [Unknown]
  - Arthralgia [Unknown]
  - Acute kidney injury [Unknown]
  - Joint swelling [Unknown]
  - Feeling hot [Unknown]
  - Sepsis [Unknown]
  - Aspartate aminotransferase increased [Unknown]
  - C-reactive protein increased [Unknown]
  - Blood creatinine increased [Unknown]
  - Blood creatine phosphokinase increased [Unknown]

NARRATIVE: CASE EVENT DATE: 20240305
